FAERS Safety Report 8803809 (Version 1)
Quarter: 2012Q4

REPORT INFORMATION
  Report Type: 
  Country: BE (occurrence: BE)
  Receive Date: 20120924
  Receipt Date: 20120924
  Transmission Date: 20130627
  Serious: Yes (Death, Other)
  Sender: FDA-Public Use
  Company Number: BE-ELI_LILLY_AND_COMPANY-BE201209004953

PATIENT
  Sex: Male

DRUGS (14)
  1. BYETTA [Suspect]
     Indication: DIABETES MELLITUS
     Dosage: 10 ug, qd
     Dates: start: 20081022
  2. KREDEX [Concomitant]
     Dosage: 25 mg, UNK
     Route: 048
  3. GLUCOPHAGE [Concomitant]
     Dosage: 850 mg, UNK
     Route: 048
  4. ZESTRIL [Concomitant]
     Dosage: 20 mg, UNK
     Route: 048
  5. LIPITOR [Concomitant]
     Dosage: 10 mg, UNK
  6. PARACETAMOL [Concomitant]
     Route: 048
  7. LIPANTHYL [Concomitant]
     Dosage: UNK
     Dates: start: 201101
  8. UNI DIAMICRON [Concomitant]
     Dosage: 60 mg, UNK
     Route: 048
  9. PLAVIX [Concomitant]
     Dosage: 15 mg, UNK
     Route: 048
  10. AMLODIPINE [Concomitant]
     Dosage: 5 mg, UNK
  11. ENBREL [Concomitant]
     Dosage: UNK, unknown
     Dates: start: 20100219, end: 20110512
  12. HUMIRA [Concomitant]
     Dosage: UNK
     Dates: start: 20110512
  13. OMEPRAZOLE [Concomitant]
     Dosage: 40 mg, prn
     Route: 048
  14. ONGLYZA [Concomitant]
     Dosage: 5 mg, UNK
     Dates: start: 20120224

REACTIONS (2)
  - Pancreatic carcinoma [Fatal]
  - Blood glucose abnormal [Unknown]
